FAERS Safety Report 8409942-3 (Version None)
Quarter: 2012Q2

REPORT INFORMATION
  Report Type: 
  Country: None (occurrence: None)
  Receive Date: 20120605
  Receipt Date: 20120601
  Transmission Date: 20120825
  Serious: No
  Sender: FDA-Public Use
  Company Number: US-PFIZER INC-2012132741

PATIENT
  Sex: Male
  Weight: 83.9 kg

DRUGS (3)
  1. VIAGRA [Suspect]
     Indication: ERECTILE DYSFUNCTION
     Dosage: UNK, ONE QUARTER OF A TABLE ONCE EVERY TWO WEEKS OR ONCE PER MONTH AS NEEDED
     Route: 048
  2. VIAGRA [Suspect]
     Dosage: 100 MG, ONE QUARTER OF A TABLET AS NEEDED
     Route: 048
     Dates: start: 20120101
  3. CRESTOR [Concomitant]
     Indication: BLOOD CHOLESTEROL ABNORMAL
     Dosage: 10 MG, DAILY

REACTIONS (1)
  - DRUG INEFFECTIVE [None]
